FAERS Safety Report 11629577 (Version 1)
Quarter: 2015Q4

REPORT INFORMATION
  Report Type: Spontaneous
  Country: CH (occurrence: CH)
  Receive Date: 20151014
  Receipt Date: 20151014
  Transmission Date: 20160304
  Serious: Yes (Other)
  Sender: FDA-Public Use
  Company Number: CH-ASTRAZENECA-2015SE96328

PATIENT
  Age: 0 Day
  Sex: Male
  Weight: 3.8 kg

DRUGS (5)
  1. TRANDATE [Suspect]
     Active Substance: LABETALOL HYDROCHLORIDE
     Indication: HYPERTENSION
     Route: 064
     Dates: start: 2014
  2. FLOXYFRAL [Suspect]
     Active Substance: FLUVOXAMINE
     Route: 064
  3. LYRICA [Suspect]
     Active Substance: PREGABALIN
     Route: 064
  4. BELOC ZOK [Suspect]
     Active Substance: METOPROLOL SUCCINATE
     Indication: HYPERTENSION
     Route: 064
     Dates: end: 2014
  5. CONCERTA [Suspect]
     Active Substance: METHYLPHENIDATE HYDROCHLORIDE
     Route: 064
     Dates: start: 2014, end: 201411

REACTIONS (1)
  - Neonatal behavioural syndrome [Recovered/Resolved]

NARRATIVE: CASE EVENT DATE: 20150519
